FAERS Safety Report 9400791 (Version 1)
Quarter: 2013Q3

REPORT INFORMATION
  Report Type: Spontaneous
  Country: FR (occurrence: FR)
  Receive Date: 20130715
  Receipt Date: 20130715
  Transmission Date: 20140515
  Serious: Yes (Hospitalization)
  Sender: FDA-Public Use
  Company Number: FR-PFIZER INC-2013201058

PATIENT
  Age: 81 Year
  Sex: Female

DRUGS (10)
  1. TAHOR [Suspect]
     Dosage: 10 MG, DAILY
     Route: 048
  2. CORDARONE [Interacting]
     Dosage: 200 MG, DAILY
     Route: 048
  3. CYMBALTA [Interacting]
     Dosage: 30 MG, DAILY
     Route: 048
  4. PREVISCAN [Interacting]
     Indication: THROMBOSIS PROPHYLAXIS
     Dosage: 20 MG, DAILY
     Route: 048
  5. GLUCOPHAGE [Concomitant]
     Dosage: 500 MG, DAILY
     Route: 048
  6. LASILIX [Concomitant]
     Dosage: 40 MG, 2X/DAY
     Route: 048
  7. BISOCE [Concomitant]
     Dosage: 1.25 MG, 2X/DAY
     Route: 048
  8. DIFFU K [Concomitant]
     Dosage: 600 MG, 2X/DAY
     Route: 048
  9. IMOVANE [Concomitant]
     Dosage: 3.75 MG, DAILY
     Route: 048
  10. UMULINE NPH [Concomitant]
     Dosage: 28 IU, DAILY
     Route: 058

REACTIONS (2)
  - Drug interaction [Unknown]
  - Muscle haemorrhage [Recovered/Resolved]
